FAERS Safety Report 4634586-9 (Version None)
Quarter: 2005Q2

REPORT INFORMATION
  Report Type: 
  Country: None (occurrence: None)
  Receive Date: 20050413
  Receipt Date: 20050404
  Transmission Date: 20051028
  Serious: Yes (Hospitalization, Disabling)
  Sender: FDA-Public Use
  Company Number: BE-MERCK-0504BEL00006

PATIENT
  Age: 74 Year
  Sex: Male

DRUGS (2)
  1. ZOCOR [Suspect]
     Indication: HYPERCHOLESTEROLAEMIA
     Route: 048
  2. [THERAPY UNSPECIFIED] [Concomitant]
     Route: 065
     Dates: start: 20010101

REACTIONS (2)
  - CEREBROVASCULAR ACCIDENT [None]
  - DEPRESSION [None]
